FAERS Safety Report 8316962-6 (Version None)
Quarter: 2012Q2

REPORT INFORMATION
  Report Type: 
  Country: None (occurrence: None)
  Receive Date: 20120425
  Receipt Date: 20120417
  Transmission Date: 20120825
  Serious: Yes (Other)
  Sender: FDA-Public Use
  Company Number: ACO_30098_2012

PATIENT
  Age: 63 Year
  Sex: Male
  Weight: 93 kg

DRUGS (6)
  1. ASPIRIN [Concomitant]
  2. AMPYRA [Suspect]
     Indication: GAIT DISTURBANCE
     Dosage: 10 MG, Q 12 HR, ORAL
     Route: 048
     Dates: start: 20120101, end: 20120414
  3. COREG [Concomitant]
  4. BETASERON [Concomitant]
  5. ROPIRINOLE (ROPIRINOLE) [Concomitant]
  6. SIMVASTATIN [Concomitant]

REACTIONS (2)
  - INCOHERENT [None]
  - HALLUCINATION, VISUAL [None]
